FAERS Safety Report 16004150 (Version 1)
Quarter: 2019Q1

REPORT INFORMATION
  Report Type: Spontaneous
  Country: ES (occurrence: ES)
  Receive Date: 20190226
  Receipt Date: 20190226
  Transmission Date: 20190418
  Serious: Yes (Life-Threatening, Hospitalization, Other)
  Sender: FDA-Public Use
  Company Number: ES-AUROBINDO-AUR-APL-2019-009125

PATIENT

DRUGS (5)
  1. AMOXICILLIN+CLAVULANIC ACID [Suspect]
     Active Substance: AMOXICILLIN\CLAVULANIC ACID
     Indication: PNEUMONIA
     Dosage: 1 DOSAGE FORM, 3 TIMES A DAY
     Route: 042
     Dates: start: 20190115, end: 20190120
  2. LINEZOLID. [Suspect]
     Active Substance: LINEZOLID
     Indication: PNEUMONIA
     Dosage: 600 MILLIGRAM, TWO TIMES A DAY
     Route: 042
     Dates: start: 20190116, end: 20190121
  3. AZITHROMYCIN ANHYDROUS. [Suspect]
     Active Substance: AZITHROMYCIN ANHYDROUS
     Indication: PNEUMONIA
     Dosage: 500 MILLIGRAM, ONCE A DAY
     Route: 042
     Dates: start: 20190116, end: 20190120
  4. TAMIFLU [Suspect]
     Active Substance: OSELTAMIVIR PHOSPHATE
     Indication: INFLUENZA A VIRUS TEST POSITIVE
     Dosage: 75 MILLIGRAM, ONCE A DAY
     Route: 048
     Dates: start: 20190117, end: 20190120
  5. VORICONAZOLE. [Suspect]
     Active Substance: VORICONAZOLE
     Indication: PNEUMONIA
     Dosage: 500 MILLIGRAM, ONCE A DAY
     Route: 048
     Dates: start: 20190117, end: 20190121

REACTIONS (2)
  - Hepatitis cholestatic [Recovering/Resolving]
  - Coagulopathy [Recovered/Resolved]

NARRATIVE: CASE EVENT DATE: 20190120
